FAERS Safety Report 4783621-6 (Version None)
Quarter: 2005Q3

REPORT INFORMATION
  Report Type: 
  Country: None (occurrence: None)
  Receive Date: 20050929
  Receipt Date: 20050926
  Transmission Date: 20060218
  Serious: Yes (Life-Threatening, Hospitalization)
  Sender: FDA-Public Use
  Company Number: PHFR2005GB03176

PATIENT
  Age: 41 Year
  Sex: Male

DRUGS (5)
  1. CARBAMAZEPINE [Suspect]
     Indication: EPILEPSY
     Dosage: 800 MG, BID
     Route: 048
     Dates: start: 19850101
  2. ACETAMINOPHEN W/ CODEINE [Concomitant]
     Route: 048
     Dates: start: 20030101
  3. LAMOTRIGINE [Concomitant]
     Route: 065
  4. LANSOPRAZOLE [Suspect]
     Indication: GASTROOESOPHAGEAL REFLUX DISEASE
     Dosage: 20MG DAILY
     Route: 048
     Dates: start: 20050830, end: 20050901
  5. IBUPROFEN [Concomitant]
     Dosage: 400MG DAILY
     Route: 048

REACTIONS (2)
  - CONVULSION [None]
  - DRUG INTERACTION [None]
